FAERS Safety Report 24951355 (Version 1)
Quarter: 2025Q1

REPORT INFORMATION
  Report Type: Spontaneous
  Country: JP (occurrence: JP)
  Receive Date: 20250210
  Receipt Date: 20250210
  Transmission Date: 20250409
  Serious: Yes (Other)
  Sender: BAYER HEALTHCARE PHARMACEUTICALS INC.
  Company Number: JP-BAYER-2025A018606

PATIENT
  Age: 58 Year
  Sex: Male
  Weight: 86.9 kg

DRUGS (2)
  1. NUBEQA [Suspect]
     Active Substance: DAROLUTAMIDE
     Indication: Prostate cancer metastatic
     Dates: start: 20230602
  2. DOCETAXEL [Suspect]
     Active Substance: DOCETAXEL
     Dates: start: 20230719, end: 20230920

REACTIONS (3)
  - Nephropathy toxic [Recovered/Resolved]
  - Blood creatinine increased [Recovered/Resolved]
  - Oedema peripheral [Recovered/Resolved]

NARRATIVE: CASE EVENT DATE: 20231002
